FAERS Safety Report 8465684-X (Version None)
Quarter: 2012Q2

REPORT INFORMATION
  Report Type: 
  Country: None (occurrence: None)
  Receive Date: 20120626
  Receipt Date: 20120622
  Transmission Date: 20120825
  Serious: Yes (Disabling)
  Sender: FDA-Public Use
  Company Number: DE-BAYER-2012-041885

PATIENT
  Age: 67 Year
  Sex: Female
  Weight: 63 kg

DRUGS (2)
  1. LEVOTHYROXINE SODIUM [Concomitant]
     Dosage: 50, QD
  2. AVELOX [Suspect]
     Indication: PNEUMONIA
     Dosage: 400 MG, QD
     Dates: start: 20120412, end: 20120418

REACTIONS (5)
  - HEARING IMPAIRED [None]
  - AGEUSIA [None]
  - ANOSMIA [None]
  - VISUAL IMPAIRMENT [None]
  - MYALGIA [None]
